FAERS Safety Report 6267802-0 (Version None)
Quarter: 2009Q3

REPORT INFORMATION
  Report Type: 
  Country: None (occurrence: None)
  Receive Date: 20090714
  Receipt Date: 20090713
  Transmission Date: 20100115
  Serious: Yes (Other)
  Sender: FDA-Public Use
  Company Number: GB-PFIZER INC-2009220714

PATIENT

DRUGS (1)
  1. SOLU-MEDRONE [Suspect]
     Dosage: 1 G, 1X/DAY
     Dates: start: 20090114

REACTIONS (4)
  - BONE DISORDER [None]
  - OEDEMA PERIPHERAL [None]
  - PALPITATIONS [None]
  - PHARYNGEAL OEDEMA [None]
